FAERS Safety Report 20861889 (Version 1)
Quarter: 2022Q2

REPORT INFORMATION
  Report Type: Spontaneous
  Country: GR (occurrence: GR)
  Receive Date: 20220523
  Receipt Date: 20220523
  Transmission Date: 20220721
  Serious: Yes (Death, Other)
  Sender: FDA-Public Use
  Company Number: GR-PFIZER INC-202200705176

PATIENT
  Age: 70 Year
  Sex: Female

DRUGS (3)
  1. ALDACTONE [Suspect]
     Active Substance: SPIRONOLACTONE
     Indication: Fluid retention
     Dosage: 0.5 TO 1 DF
  2. ALDACTONE [Suspect]
     Active Substance: SPIRONOLACTONE
     Indication: Peripheral swelling
  3. LASIX [Concomitant]
     Active Substance: FUROSEMIDE
     Indication: Peripheral swelling
     Dosage: UNK

REACTIONS (6)
  - Pulmonary embolism [Fatal]
  - Pulmonary oedema [Fatal]
  - Asthenia [Unknown]
  - Dehydration [Unknown]
  - Somnolence [Unknown]
  - Swelling [Unknown]
